FAERS Safety Report 13260070 (Version 1)
Quarter: 2017Q1

REPORT INFORMATION
  Report Type: Spontaneous
  Country: US (occurrence: US)
  Receive Date: 20170222
  Receipt Date: 20170222
  Transmission Date: 20170428
  Serious: No
  Sender: FDA-Public Use
  Company Number: US-TEVA-682490USA

PATIENT
  Sex: Female

DRUGS (1)
  1. AMPHETAMINE W/DEXTROAMPHETAMINE [Suspect]
     Active Substance: AMPHETAMINE SULFATE\DEXTROAMPHETAMINE

REACTIONS (4)
  - Drug effect decreased [Unknown]
  - Product colour issue [Unknown]
  - Hypersensitivity [Unknown]
  - Product physical issue [Unknown]

NARRATIVE: CASE EVENT DATE: 2016
